FAERS Safety Report 4500414-5 (Version None)
Quarter: 2004Q3

REPORT INFORMATION
  Report Type: 
  Country: None (occurrence: None)
  Receive Date: 20040928
  Receipt Date: 20040802
  Transmission Date: 20050211
  Serious: No
  Sender: FDA-Public Use
  Company Number: 04P-163-0268652-00

PATIENT
  Age: 73 Year
  Sex: Female
  Weight: 68.4932 kg

DRUGS (5)
  1. HUMIRA [Suspect]
     Indication: RHEUMATOID ARTHRITIS
     Dosage: 40 MG 1 IN 2 WK SUBCUTANEOUS
     Route: 058
     Dates: start: 20040715
  2. ATENOLOL [Concomitant]
  3. ATOLACT [Concomitant]
  4. IRBESARTAN [Concomitant]
  5. RABEPRAZOLE SODIUM [Concomitant]

REACTIONS (1)
  - INJECTION SITE HAEMORRHAGE [None]
